FAERS Safety Report 9361955 (Version 5)
Quarter: 2022Q4

REPORT INFORMATION
  Report Type: Report from Study
  Country: US (occurrence: US)
  Receive Date: 20130621
  Receipt Date: 20221021
  Transmission Date: 20230112
  Serious: Yes (Other)
  Sender: FDA-Public Use
  Company Number: US-VERTEX PHARMACEUTICALS INC-2013-007318

PATIENT
  Age: 48 Year
  Sex: Female

DRUGS (7)
  1. KALYDECO [Suspect]
     Active Substance: IVACAFTOR
     Indication: Cystic fibrosis
     Dosage: UNK
     Route: 048
     Dates: start: 20120215, end: 201304
  2. KALYDECO [Suspect]
     Active Substance: IVACAFTOR
     Dosage: HALF DOSE (REDUCED DOSE)
     Route: 048
     Dates: start: 201304, end: 20150708
  3. KALYDECO [Suspect]
     Active Substance: IVACAFTOR
     Dosage: FULL DOSE
     Route: 048
  4. KALYDECO [Suspect]
     Active Substance: IVACAFTOR
     Dosage: 150MG, QD (REDUCED DOSE)
     Route: 048
     Dates: start: 20160727, end: 20200623
  5. KALYDECO [Suspect]
     Active Substance: IVACAFTOR
     Dosage: REDUCED DOSE
     Route: 048
     Dates: start: 20200710, end: 20220411
  6. KALYDECO [Suspect]
     Active Substance: IVACAFTOR
     Dosage: 150MG, QD (PER DAY)
     Route: 048
     Dates: start: 20220412, end: 20220930
  7. KALYDECO [Suspect]
     Active Substance: IVACAFTOR
     Dosage: 150 MG, QD (REDUCED)
     Route: 048
     Dates: start: 20221001

REACTIONS (9)
  - Sinus operation [Unknown]
  - Hepatic enzyme increased [Unknown]
  - Gastrointestinal disorder [Unknown]
  - Constipation [Unknown]
  - Hypoglycaemia [Not Recovered/Not Resolved]
  - Rash [Recovered/Resolved]
  - Rhinorrhoea [Unknown]
  - Weight increased [Unknown]
  - Therapeutic product effect decreased [Unknown]

NARRATIVE: CASE EVENT DATE: 20120301
